FAERS Safety Report 4380298-9 (Version None)
Quarter: 2004Q2

REPORT INFORMATION
  Report Type: 
  Country: None (occurrence: None)
  Receive Date: 20040616
  Receipt Date: 20040616
  Transmission Date: 20050107
  Serious: Yes (Disabling)
  Sender: FDA-Public Use
  Company Number: None

PATIENT
  Sex: Female
  Weight: 52.1637 kg

DRUGS (1)
  1. SEPTOCAINE [Suspect]

REACTIONS (4)
  - DYSGEUSIA [None]
  - HYPOAESTHESIA ORAL [None]
  - ORAL PAIN [None]
  - PARAESTHESIA ORAL [None]
